FAERS Safety Report 8225363-0 (Version None)
Quarter: 2012Q1

REPORT INFORMATION
  Report Type: 
  Country: None (occurrence: None)
  Receive Date: 20120321
  Receipt Date: 20120309
  Transmission Date: 20120608
  Serious: Yes (Hospitalization)
  Sender: FDA-Public Use
  Company Number: FR-SANOFI-AVENTIS-2012SA015927

PATIENT
  Age: 85 Year
  Sex: Female

DRUGS (16)
  1. LASIX [Suspect]
     Route: 048
     Dates: start: 20111230
  2. NOVORAPID [Concomitant]
  3. LEVOTHYROXINE SODIUM [Concomitant]
     Indication: HYPOTHYROIDISM
     Route: 048
  4. VITAMIN D [Concomitant]
     Route: 048
  5. MINISINTROM [Concomitant]
     Route: 048
  6. ACETAMINOPHEN [Concomitant]
     Route: 048
  7. LASIX [Suspect]
     Route: 048
  8. LASIX [Suspect]
     Dosage: DOSE REDUCED
     Route: 048
  9. LANTUS [Concomitant]
     Dosage: DOSE:100 INTERNATIONAL UNIT(S)/MILLILITRE
     Route: 058
  10. DIGOXIN [Suspect]
     Route: 048
  11. ALDACTONE [Concomitant]
     Route: 048
  12. CORDARONE [Concomitant]
     Route: 048
  13. BISOPROLOL FUMARATE [Concomitant]
     Route: 048
  14. PROZAC [Concomitant]
     Route: 048
  15. LEXOMIL [Concomitant]
     Route: 048
  16. ALLOPURINOL [Concomitant]
     Route: 048

REACTIONS (2)
  - RENAL FAILURE CHRONIC [None]
  - OVERDOSE [None]
